FAERS Safety Report 7607708-5 (Version None)
Quarter: 2011Q3

REPORT INFORMATION
  Report Type: 
  Country: None (occurrence: None)
  Receive Date: 20110713
  Receipt Date: 20110518
  Transmission Date: 20111222
  Serious: Yes (Other)
  Sender: FDA-Public Use
  Company Number: PHHY2011CR42684

PATIENT
  Age: 77 Year
  Sex: Female

DRUGS (3)
  1. DIOVAN HCT [Suspect]
     Dosage: HALF TABLET PERDAY
  2. LOVASTATIN [Concomitant]
     Dosage: 20 MG, UNK
  3. DIOVAN HCT [Suspect]
     Indication: HYPERTENSION
     Dosage: 320 MG OF VALSA AND 25 MG OF HYD PER DAY

REACTIONS (2)
  - DIZZINESS [None]
  - GASTROINTESTINAL INFECTION [None]
